FAERS Safety Report 7400495-5 (Version None)
Quarter: 2011Q2

REPORT INFORMATION
  Report Type: 
  Country: None (occurrence: None)
  Receive Date: 20110407
  Receipt Date: 20110331
  Transmission Date: 20111010
  Serious: Yes (Other)
  Sender: FDA-Public Use
  Company Number: US-PFIZER INC-2011072373

PATIENT
  Sex: Male
  Weight: 76.19 kg

DRUGS (11)
  1. LYRICA [Suspect]
     Indication: FEELING HOT
  2. AMITRIPTYLINE [Concomitant]
     Indication: MUSCLE SPASMS
  3. NEURONTIN [Suspect]
     Indication: PAIN
  4. LYRICA [Suspect]
     Indication: PAIN
  5. NEURONTIN [Suspect]
     Indication: NEURALGIA
     Dosage: 75 MG, UNK
     Dates: start: 20081201, end: 20090101
  6. NEURONTIN [Suspect]
     Indication: FEELING HOT
  7. BUPROPION [Concomitant]
     Indication: ANXIETY
     Dosage: UNK
  8. AMITRIPTYLINE [Concomitant]
     Indication: SLEEP DISORDER
     Dosage: UNK
  9. AMITRIPTYLINE [Concomitant]
     Indication: PAIN
  10. LYRICA [Suspect]
     Indication: NEURALGIA
     Dosage: 300 MG, 2X/DAY
     Route: 048
     Dates: start: 20090101, end: 20110101
  11. HYDROCODONE [Concomitant]
     Indication: BACK PAIN
     Dosage: UNK

REACTIONS (4)
  - BLOOD TRIGLYCERIDES INCREASED [None]
  - BLOOD CHOLESTEROL DECREASED [None]
  - HYPERTENSION [None]
  - WEIGHT DECREASED [None]
